FAERS Safety Report 14137736 (Version 3)
Quarter: 2018Q2

REPORT INFORMATION
  Report Type: Spontaneous
  Country: CH (occurrence: CH)
  Receive Date: 20171027
  Receipt Date: 20180620
  Transmission Date: 20180711
  Serious: Yes (Other)
  Sender: FDA-Public Use
  Company Number: CH-009507513-1710CHE008796

PATIENT
  Age: 26 Year
  Sex: Female

DRUGS (8)
  1. ZYPREXA [Concomitant]
     Active Substance: OLANZAPINE
     Dosage: 5 MG, QD
     Route: 065
     Dates: start: 20170221, end: 201704
  2. PASPERTIN [METOCLOPRAMIDE HYDROCHLORIDE] [Suspect]
     Active Substance: METOCLOPRAMIDE HYDROCHLORIDE
     Dosage: 10 MG, TID
     Route: 040
     Dates: start: 20170731
  3. SEROQUEL [Suspect]
     Active Substance: QUETIAPINE FUMARATE
     Dosage: 50 MG, QD
     Route: 048
     Dates: start: 201708
  4. DEROXAT [Concomitant]
     Active Substance: PAROXETINE HYDROCHLORIDE
     Dosage: 30 MG, QD
     Route: 065
     Dates: start: 20170221, end: 201704
  5. ITINEROL B6 [Suspect]
     Active Substance: CAFFEINE\MECLIZINE MONOHYDROCHLORIDE\PYRIDOXINE HYDROCHLORIDE
     Dosage: 1 DF, BID
     Route: 054
     Dates: start: 20170731
  6. REMERON [Suspect]
     Active Substance: MIRTAZAPINE
     Dosage: 45 MG, QD
     Route: 048
     Dates: start: 201708
  7. BENERVA [Suspect]
     Active Substance: THIAMINE
     Dosage: 150 MG, FOR 48 HOURS
     Route: 041
     Dates: start: 20170731
  8. BELLAFIT N [Suspect]
     Active Substance: ATROPINE SULFATE
     Dosage: 2 MG, QD
     Route: 048
     Dates: start: 20170731

REACTIONS (3)
  - Delivery [None]
  - Exposure during pregnancy [Recovered/Resolved]
  - Suicidal ideation [None]

NARRATIVE: CASE EVENT DATE: 201707
